FAERS Safety Report 10023529 (Version 1)
Quarter: 2014Q1

REPORT INFORMATION
  Report Type: Spontaneous
  Country: US (occurrence: None)
  Receive Date: 20140102
  Receipt Date: 20140102
  Transmission Date: 20141002
  Serious: Yes (Death, Life-Threatening, Hospitalization, Disabling)
  Sender: FDA-Public Use
  Company Number: 1713747-2013-99982

PATIENT
  Sex: Female

DRUGS (2)
  1. DELFLEX [Suspect]
     Indication: DIALYSIS
     Dates: start: 200908, end: 200912
  2. LIBERTY CYCLER AND CYCLER TUBING [Concomitant]

REACTIONS (2)
  - Peritonitis [None]
  - Sepsis [None]
